FAERS Safety Report 12927108 (Version 1)
Quarter: 2016Q4

REPORT INFORMATION
  Report Type: Spontaneous
  Country: US (occurrence: US)
  Receive Date: 20161109
  Receipt Date: 20161109
  Transmission Date: 20170207
  Serious: Yes (Hospitalization)
  Sender: FDA-Public Use
  Company Number: None

PATIENT
  Age: 8 Year
  Sex: Female
  Weight: 24.3 kg

DRUGS (5)
  1. METHOTREXATE. [Suspect]
     Active Substance: METHOTREXATE
     Dates: end: 20160823
  2. ONCASPAR [Suspect]
     Active Substance: PEGASPARGASE
     Dates: end: 20160901
  3. VINCRISTINE SULFATE. [Suspect]
     Active Substance: VINCRISTINE SULFATE
     Dates: end: 20160823
  4. CYTARABINE. [Suspect]
     Active Substance: CYTARABINE
     Dates: end: 20160831
  5. DEXAMETHASONE. [Suspect]
     Active Substance: DEXAMETHASONE
     Dates: end: 20160827

REACTIONS (6)
  - Pneumonia [None]
  - Contusion [None]
  - Febrile neutropenia [None]
  - Purpura [None]
  - Thrombocytopenia [None]
  - Aspergillus infection [None]

NARRATIVE: CASE EVENT DATE: 20160906
